FAERS Safety Report 7404538-4 (Version None)
Quarter: 2011Q2

REPORT INFORMATION
  Report Type: 
  Country: None (occurrence: None)
  Receive Date: 20110411
  Receipt Date: 20110328
  Transmission Date: 20111010
  Serious: Yes (Other)
  Sender: FDA-Public Use
  Company Number: GB-MYLANLABS-2011S1006453

PATIENT
  Age: 95 Year
  Sex: Male

DRUGS (7)
  1. LISINOPRIL [Suspect]
     Route: 048
     Dates: start: 20060522, end: 20060618
  2. OMEPRAZOLE [Concomitant]
     Indication: GASTROOESOPHAGEAL REFLUX DISEASE
     Dates: start: 20100308
  3. LYRICA [Suspect]
     Indication: PRODUCT USED FOR UNKNOWN INDICATION
     Dates: start: 20110219
  4. FENTANYL [Concomitant]
     Indication: PAIN
     Route: 061
     Dates: start: 20110308
  5. LISINOPRIL [Suspect]
     Indication: HYPERTENSION
     Route: 048
     Dates: start: 20060619
  6. ACETAMINOPHEN [Concomitant]
     Indication: PAIN
     Dates: start: 20070116
  7. AMITRIPTYLINE HYDROCHLORIDE [Concomitant]
     Indication: DEPRESSION
     Dates: start: 20110214, end: 20110215

REACTIONS (4)
  - DEPRESSION [None]
  - SYNCOPE [None]
  - HALLUCINATION [None]
  - FALL [None]
